FAERS Safety Report 18522479 (Version 1)
Quarter: 2020Q4

REPORT INFORMATION
  Report Type: Spontaneous
  Country: DE (occurrence: DE)
  Receive Date: 20201119
  Receipt Date: 20201119
  Transmission Date: 20210114
  Serious: Yes (Other)
  Sender: FDA-Public Use
  Company Number: DE-ALK-ABELLO A/S-2020AA003810

PATIENT

DRUGS (2)
  1. ACARIZAX [Suspect]
     Active Substance: DERMATOPHAGOIDES FARINAE\DERMATOPHAGOIDES PTERONYSSINUS
     Indication: PRODUCT USED FOR UNKNOWN INDICATION
     Dosage: 12 SQ-HDM
     Route: 060
     Dates: start: 20201029, end: 202011
  2. ITULAZAX [Suspect]
     Active Substance: BETULA PENDULA POLLEN
     Indication: PRODUCT USED FOR UNKNOWN INDICATION
     Dosage: 12 SQ-BET
     Route: 060
     Dates: start: 20201102, end: 202011

REACTIONS (7)
  - Aphonia [Recovered/Resolved]
  - Laryngeal oedema [Recovered/Resolved]
  - Local reaction [Recovered/Resolved]
  - Heart rate increased [Recovered/Resolved]
  - Heart rate increased [Recovered/Resolved]
  - Aphonia [Recovered/Resolved]
  - Laryngeal oedema [Recovered/Resolved]

NARRATIVE: CASE EVENT DATE: 20201029
